FAERS Safety Report 16764463 (Version 1)
Quarter: 2019Q3

REPORT INFORMATION
  Report Type: Spontaneous
  Country: US (occurrence: US)
  Receive Date: 20190712
  Receipt Date: 20190712
  Transmission Date: 20191005
  Serious: No
  Sender: FDA-Public Use
  Company Number: None

PATIENT
  Age: 37 Year
  Sex: Male

DRUGS (1)
  1. STELARA [Suspect]
     Active Substance: USTEKINUMAB
     Route: 058
     Dates: start: 20181211

REACTIONS (3)
  - Full blood count decreased [None]
  - Thrombosis [None]
  - Crohn^s disease [None]

NARRATIVE: CASE EVENT DATE: 20190705
